FAERS Safety Report 25447949 (Version 1)
Quarter: 2025Q2

REPORT INFORMATION
  Report Type: Spontaneous
  Country: RU (occurrence: RU)
  Receive Date: 20250617
  Receipt Date: 20250617
  Transmission Date: 20250717
  Serious: Yes (Other)
  Sender: NOVARTIS
  Company Number: RU-002147023-NVSC2025RU093416

PATIENT
  Sex: Female

DRUGS (2)
  1. DABRAFENIB [Suspect]
     Active Substance: DABRAFENIB
     Indication: Product used for unknown indication
     Dosage: 150 MG, BID, (TWICE DAILY)
     Route: 048
     Dates: start: 202205
  2. TRAMETINIB [Suspect]
     Active Substance: TRAMETINIB
     Indication: Product used for unknown indication
     Dosage: 2 MG, QD, (ONCE DAILY)
     Route: 048
     Dates: start: 202205

REACTIONS (3)
  - Metabolic disorder [Unknown]
  - Disease progression [Unknown]
  - Mass [Unknown]

NARRATIVE: CASE EVENT DATE: 20241018
